FAERS Safety Report 5506113-5 (Version None)
Quarter: 2007Q4

REPORT INFORMATION
  Report Type: 
  Country: None (occurrence: None)
  Receive Date: 20071105
  Receipt Date: 20071030
  Transmission Date: 20080405
  Serious: Yes (Other)
  Sender: FDA-Public Use
  Company Number: LV-AVENTIS-200720086GDDC

PATIENT
  Age: 52 Year
  Sex: Female

DRUGS (9)
  1. INSULIN GLARGINE [Suspect]
     Indication: DIABETES MELLITUS
     Route: 058
     Dates: start: 20051014, end: 20060410
  2. OPTIPEN (INSULIN PUMP) [Suspect]
     Indication: DIABETES MELLITUS
  3. CODE UNBROKEN [Suspect]
     Dosage: DOSE QUANTITY: 1
     Route: 048
     Dates: start: 20051014
  4. LEVOTHYROXINE SODIUM [Concomitant]
     Indication: HYPOTHYROIDISM
     Dosage: DOSE QUANTITY: 200
     Dates: start: 20040201
  5. PERINDOPRIL [Concomitant]
     Indication: HYPERTENSION
     Dates: start: 20040201
  6. AMLODIPINE [Concomitant]
     Indication: HYPERTENSION
     Dates: start: 20040201
  7. THIAZIDE [Concomitant]
     Indication: HYPERTENSION
     Dates: start: 20040201
  8. ASPIRIN [Concomitant]
     Indication: HYPERTENSION
     Dates: start: 20040201
  9. METFORMIN [Concomitant]
     Indication: DIABETES MELLITUS
     Dates: start: 20040201

REACTIONS (1)
  - WEIGHT INCREASED [None]
